FAERS Safety Report 6711799-3 (Version None)
Quarter: 2010Q2

REPORT INFORMATION
  Report Type: 
  Country: None (occurrence: None)
  Receive Date: 20100505
  Receipt Date: 20100423
  Transmission Date: 20101027
  Serious: Yes (Other)
  Sender: FDA-Public Use
  Company Number: US-ROCHE-701165

PATIENT
  Sex: Female
  Weight: 59 kg

DRUGS (1)
  1. CAPECITABINE [Suspect]
     Dosage: 3 TABS IN AM AND 3 TABS IN PM
     Route: 048
     Dates: start: 20100208

REACTIONS (2)
  - MALIGNANT NEOPLASM PROGRESSION [None]
  - RASH [None]
